FAERS Safety Report 13185589 (Version 4)
Quarter: 2017Q1

REPORT INFORMATION
  Report Type: Spontaneous
  Country: TR (occurrence: TR)
  Receive Date: 20170203
  Receipt Date: 20170302
  Transmission Date: 20170428
  Serious: Yes (Hospitalization, Other)
  Sender: FDA-Public Use
  Company Number: PHHY2017TR015095

PATIENT
  Age: 25 Year
  Sex: Male
  Weight: 95 kg

DRUGS (1)
  1. FINGYA [Suspect]
     Active Substance: FINGOLIMOD
     Indication: RELAPSING-REMITTING MULTIPLE SCLEROSIS
     Dosage: 0.5 MG, QD
     Route: 048
     Dates: start: 20160815, end: 20170127

REACTIONS (11)
  - Vasculitis [Unknown]
  - Balance disorder [Recovering/Resolving]
  - Encephalopathy [Recovering/Resolving]
  - Pyrexia [Recovering/Resolving]
  - Behcet^s syndrome [Unknown]
  - Ataxia [Recovering/Resolving]
  - Hypoaesthesia [Unknown]
  - Altered state of consciousness [Recovering/Resolving]
  - Lymphocyte count decreased [Recovering/Resolving]
  - Personality change [Recovering/Resolving]
  - Central nervous system lesion [Recovering/Resolving]

NARRATIVE: CASE EVENT DATE: 201611
